FAERS Safety Report 7658506-8 (Version None)
Quarter: 2011Q3

REPORT INFORMATION
  Report Type: 
  Country: None (occurrence: None)
  Receive Date: 20110804
  Receipt Date: 20110804
  Transmission Date: 20111222
  Serious: Yes (Hospitalization)
  Sender: FDA-Public Use
  Company Number: None

PATIENT
  Age: 83 Year
  Sex: Male
  Weight: 80 kg

DRUGS (1)
  1. RITUXIMAB [Suspect]
     Indication: LYMPHOCYTIC LEUKAEMIA
     Dosage: 750 MG ONCE IV
     Route: 042
     Dates: start: 20110607, end: 20110607

REACTIONS (6)
  - TREMOR [None]
  - ANGIOEDEMA [None]
  - SWOLLEN TONGUE [None]
  - COUGH [None]
  - WHEEZING [None]
  - RESPIRATORY DEPRESSION [None]
